FAERS Safety Report 6395936-9 (Version None)
Quarter: 2009Q4

REPORT INFORMATION
  Report Type: 
  Country: None (occurrence: None)
  Receive Date: 20091009
  Receipt Date: 20091008
  Transmission Date: 20100525
  Serious: Yes (Death, Other)
  Sender: FDA-Public Use
  Company Number: US-PURDUE-USA-2009-0040398

PATIENT
  Age: 57 Year
  Sex: Male

DRUGS (3)
  1. RYZOLT [Suspect]
     Indication: PAIN
     Dosage: 200 MG, DAILY
     Dates: start: 20090501
  2. ALCOHOL                            /00002101/ [Suspect]
     Indication: ALCOHOL ABUSE
  3. KADIAN [Concomitant]
     Indication: PAIN

REACTIONS (4)
  - ALCOHOL ABUSE [None]
  - DEATH [None]
  - DRUG LEVEL INCREASED [None]
  - DRUG WITHDRAWAL CONVULSIONS [None]
